FAERS Safety Report 19778037 (Version 1)
Quarter: 2021Q3

REPORT INFORMATION
  Report Type: Spontaneous
  Country: US (occurrence: US)
  Receive Date: 20210901
  Receipt Date: 20210901
  Transmission Date: 20211014
  Serious: Yes (Other)
  Sender: FDA-Public Use
  Company Number: None

PATIENT
  Age: 56 Year
  Sex: Female
  Weight: 48.08 kg

DRUGS (2)
  1. NOREPINEPHRINE. [Suspect]
     Active Substance: NOREPINEPHRINE
  2. SPECTRUM IQ IV PUMP [Suspect]
     Active Substance: DEVICE

REACTIONS (4)
  - Device infusion issue [None]
  - Drug dose omission by device [None]
  - Blood pressure decreased [None]
  - Device failure [None]

NARRATIVE: CASE EVENT DATE: 20210830
